FAERS Safety Report 25816199 (Version 1)
Quarter: 2025Q3

REPORT INFORMATION
  Report Type: Spontaneous
  Country: IN (occurrence: IN)
  Receive Date: 20250918
  Receipt Date: 20250918
  Transmission Date: 20251020
  Serious: Yes (Other)
  Sender: Onesource Specialty Pharma
  Company Number: IN-STRIDES ARCOLAB LIMITED-2025OS000693

PATIENT
  Sex: Female

DRUGS (4)
  1. LABETALOL [Suspect]
     Active Substance: LABETALOL
     Indication: Pre-eclampsia
     Route: 042
  2. LABETALOL [Suspect]
     Active Substance: LABETALOL
     Route: 042
  3. MAGNESIUM SULFATE [Suspect]
     Active Substance: MAGNESIUM SULFATE
     Indication: Pre-eclampsia
     Route: 042
  4. FUROSEMIDE [Suspect]
     Active Substance: FUROSEMIDE
     Indication: Pre-eclampsia
     Route: 042

REACTIONS (3)
  - Foetal death [Unknown]
  - Premature delivery [Unknown]
  - Maternal exposure during pregnancy [Unknown]
